FAERS Safety Report 8166827-8 (Version None)
Quarter: 2012Q1

REPORT INFORMATION
  Report Type: 
  Country: None (occurrence: None)
  Receive Date: 20120227
  Receipt Date: 20111209
  Transmission Date: 20120608
  Serious: No
  Sender: FDA-Public Use
  Company Number: US-MYLANLABS-2011S1025599

PATIENT
  Age: 62 Year
  Sex: Female
  Weight: 95.26 kg

DRUGS (11)
  1. VITAMIN D [Concomitant]
     Indication: VITAMIN SUPPLEMENTATION
     Route: 048
  2. NASONEX [Concomitant]
     Indication: ASTHMA
  3. SPIRONOLACTONE [Concomitant]
     Indication: OEDEMA
     Route: 048
  4. SPIRIVA [Concomitant]
     Indication: ASTHMA
  5. ADVAIR DISKUS 100/50 [Concomitant]
     Indication: ASTHMA
  6. VITAMIN E [Concomitant]
     Indication: VITAMIN SUPPLEMENTATION
     Route: 048
  7. LORATADINE [Concomitant]
     Indication: ASTHMA
     Route: 048
  8. URSODIOL [Suspect]
     Indication: BILIARY CIRRHOSIS
     Route: 048
     Dates: start: 20111128
  9. VENTOLIN [Concomitant]
     Indication: ASTHMA
  10. FUROSEMIDE [Concomitant]
     Indication: OEDEMA
     Route: 048
  11. DUONEB [Concomitant]
     Indication: ASTHMA

REACTIONS (2)
  - NAUSEA [None]
  - RHINORRHOEA [None]
